FAERS Safety Report 7483586-2 (Version None)
Quarter: 2011Q2

REPORT INFORMATION
  Report Type: 
  Country: None (occurrence: None)
  Receive Date: 20110517
  Receipt Date: 20110511
  Transmission Date: 20111010
  Serious: No
  Sender: FDA-Public Use
  Company Number: US-PFIZER INC-2011101699

PATIENT
  Sex: Male

DRUGS (1)
  1. XANAX [Suspect]
     Indication: INSOMNIA
     Dosage: UNK

REACTIONS (2)
  - DRUG INEFFECTIVE [None]
  - HORMONE LEVEL ABNORMAL [None]
